FAERS Safety Report 13697458 (Version 1)
Quarter: 2017Q2

REPORT INFORMATION
  Report Type: Spontaneous
  Country: US (occurrence: US)
  Receive Date: 20170628
  Receipt Date: 20170628
  Transmission Date: 20170830
  Serious: No
  Sender: FDA-Public Use
  Company Number: US-BAYER-2017-124229

PATIENT
  Sex: Female

DRUGS (3)
  1. KRISTALOSE [Concomitant]
     Active Substance: LACTULOSE
     Dosage: UNK
  2. LACTULOSE. [Concomitant]
     Active Substance: LACTULOSE
     Dosage: UNK
  3. MIRALAX [Suspect]
     Active Substance: POLYETHYLENE GLYCOL 3350
     Indication: GASTROINTESTINAL DISORDER
     Dosage: 1 DF, QD
     Route: 048

REACTIONS (3)
  - Drug prescribing error [Unknown]
  - Incorrect drug administration duration [Unknown]
  - Drug ineffective [Unknown]
